FAERS Safety Report 9432897 (Version 1)
Quarter: 2013Q3

REPORT INFORMATION
  Report Type: Report from Study
  Country: MX (occurrence: MX)
  Receive Date: 20130731
  Receipt Date: 20130731
  Transmission Date: 20140515
  Serious: Yes (Other)
  Sender: FDA-Public Use
  Company Number: PHHY2013MX080151

PATIENT
  Age: 62 Year
  Sex: Female

DRUGS (5)
  1. ACLASTA [Suspect]
     Indication: OSTEITIS DEFORMANS
     Dosage: 5 MG/ 100 ML/ ANNUALLY
     Route: 042
     Dates: end: 2012
  2. INSULIN [Concomitant]
     Indication: DIABETES MELLITUS
  3. METFORMIN [Concomitant]
     Indication: DIABETES MELLITUS
     Dosage: 3 UKN, QD
     Dates: start: 1998
  4. METOPROLOL [Concomitant]
     Indication: HYPERTENSION
     Dosage: 1 UKN, UNK
     Dates: start: 2008
  5. SILICON DIOXIDE [Concomitant]
     Dosage: 1 UKN, UNK
     Dates: start: 201304

REACTIONS (6)
  - Cataract [Not Recovered/Not Resolved]
  - Bone disorder [Not Recovered/Not Resolved]
  - Expired drug administered [Unknown]
  - Arthralgia [Not Recovered/Not Resolved]
  - Musculoskeletal pain [Not Recovered/Not Resolved]
  - Bone pain [Not Recovered/Not Resolved]
